FAERS Safety Report 9149927 (Version 1)
Quarter: 2013Q1

REPORT INFORMATION
  Report Type: Spontaneous
  Country: US (occurrence: None)
  Receive Date: 20130201
  Receipt Date: 20130201
  Transmission Date: 20140127
  Serious: Yes (Hospitalization)
  Sender: FDA-Public Use
  Company Number: 2013STPI000028

PATIENT
  Age: 82 Year
  Sex: Male
  Weight: 80.3 kg

DRUGS (3)
  1. MATULANE [Suspect]
     Indication: LYMPHOMA
     Route: 048
     Dates: start: 20121204, end: 201301
  2. VELBAN [Suspect]
     Indication: LYMPHOMA
     Dosage: 12 MG, X2, INTRAVENOUS
     Route: 042
     Dates: start: 20121206
  3. MUSTARGEN (CHLOMETHINE HYDROCHLORIDE) [Concomitant]
     Indication: LYMPHOMA
     Dosage: 12 MG X2, INTRAVENOUS
     Route: 042
     Dates: start: 20121206

REACTIONS (6)
  - Dehydration [None]
  - Vertigo [None]
  - Vision blurred [None]
  - Malaise [None]
  - Hypotension [None]
  - Anaemia [None]
